FAERS Safety Report 19773993 (Version 5)
Quarter: 2021Q4

REPORT INFORMATION
  Report Type: Report from Study
  Country: US (occurrence: US)
  Receive Date: 20210831
  Receipt Date: 20211220
  Transmission Date: 20220304
  Serious: No
  Sender: FDA-Public Use
  Company Number: US-NOVARTISTESTPH-NVSC2021US197524

PATIENT
  Sex: Female

DRUGS (2)
  1. COSENTYX [Suspect]
     Active Substance: SECUKINUMAB
     Indication: Psoriasis
     Dosage: 300 MG SQ WEEKS 0,1,2,3,4 AND EVERY 4 WEEKS THEREAFTER
     Route: 058
  2. COSENTYX [Suspect]
     Active Substance: SECUKINUMAB
     Dosage: 300 MG, QMO(EVERY 4 WEEKS)
     Route: 058

REACTIONS (4)
  - Arthralgia [Unknown]
  - Arthritis [Unknown]
  - Injection site erythema [Unknown]
  - Injection site pruritus [Unknown]
